FAERS Safety Report 19231919 (Version 1)
Quarter: 2021Q2

REPORT INFORMATION
  Report Type: Spontaneous
  Country: GB (occurrence: GB)
  Receive Date: 20210507
  Receipt Date: 20210507
  Transmission Date: 20210717
  Serious: Yes (Disabling, Other)
  Sender: FDA-Public Use
  Company Number: GB-MYLANLABS-2021M1025029

PATIENT
  Age: 61 Year
  Sex: Male
  Weight: 84 kg

DRUGS (1)
  1. OMEPRAZOLE. [Suspect]
     Active Substance: OMEPRAZOLE
     Indication: GASTRIC DISORDER
     Dosage: 1 MILLIGRAM
     Dates: start: 20200601, end: 20210416

REACTIONS (11)
  - Vaccination site pustule [Recovering/Resolving]
  - Dizziness [Unknown]
  - Dysphagia [Unknown]
  - Disorientation [Recovering/Resolving]
  - Movement disorder [Unknown]
  - Diarrhoea [Not Recovered/Not Resolved]
  - Asthenia [Unknown]
  - Chromaturia [Unknown]
  - Hyperhidrosis [Unknown]
  - Urine odour abnormal [Unknown]
  - Pyrexia [Recovering/Resolving]

NARRATIVE: CASE EVENT DATE: 20200622
